FAERS Safety Report 4884985-5 (Version None)
Quarter: 2006Q1

REPORT INFORMATION
  Report Type: 
  Country: None (occurrence: None)
  Receive Date: 20060119
  Receipt Date: 20060112
  Transmission Date: 20060701
  Serious: Yes (Other)
  Sender: FDA-Public Use
  Company Number: PHHO2006JP01045

PATIENT
  Age: 58 Year
  Sex: Male

DRUGS (3)
  1. NARCARICIN [Suspect]
     Indication: HYPERURICAEMIA
     Dosage: 50 MG
     Route: 048
     Dates: start: 20000312
  2. ISOSORBIDE DINITRATE [Suspect]
     Indication: ANGINA PECTORIS
     Dosage: 40 MG
     Route: 048
     Dates: start: 20000312
  3. DIOVAN [Suspect]
     Indication: HYPERTENSION
     Dosage: 80 MG, QD
     Route: 048
     Dates: start: 20030525

REACTIONS (1)
  - ANGINA PECTORIS [None]
